FAERS Safety Report 6905581-1 (Version None)
Quarter: 2010Q3

REPORT INFORMATION
  Report Type: 
  Country: None (occurrence: None)
  Receive Date: 20100804
  Receipt Date: 20100727
  Transmission Date: 20110219
  Serious: Yes (Hospitalization)
  Sender: FDA-Public Use
  Company Number: US-GENZYME-FABR-1001237

PATIENT
  Sex: Male
  Weight: 68.1 kg

DRUGS (3)
  1. FABRAZYME [Suspect]
     Indication: FABRY'S DISEASE
     Dosage: 70 MG, Q4W
     Dates: start: 20091101
  2. FABRAZYME [Suspect]
     Dosage: 70 MG, Q2W
     Route: 042
     Dates: start: 20030101
  3. THYROID HORMONES [Concomitant]
     Indication: HYPOTHYROIDISM

REACTIONS (7)
  - ABDOMINAL PAIN UPPER [None]
  - DIARRHOEA [None]
  - LIMB INJURY [None]
  - PAIN IN EXTREMITY [None]
  - PROTEIN TOTAL INCREASED [None]
  - SENSORY LOSS [None]
  - SLUGGISHNESS [None]
